FAERS Safety Report 10009205 (Version 2)
Quarter: 2014Q1

REPORT INFORMATION
  Report Type: Spontaneous
  Country: US (occurrence: US)
  Receive Date: 20140313
  Receipt Date: 20140313
  Transmission Date: 20141002
  Serious: No
  Sender: FDA-Public Use
  Company Number: US-GILEAD-2013-0073716

PATIENT
  Sex: Female

DRUGS (3)
  1. LETAIRIS [Suspect]
     Indication: PULMONARY ARTERIAL HYPERTENSION
     Dosage: 5 MG, QD
     Route: 048
     Dates: start: 20121030, end: 20130410
  2. LETAIRIS [Suspect]
     Indication: PULMONARY HYPERTENSION
  3. WARFARIN [Concomitant]
     Indication: THROMBOSIS PROPHYLAXIS

REACTIONS (4)
  - Tremor [Unknown]
  - Depression [Unknown]
  - Abdominal discomfort [Unknown]
  - Hot flush [Unknown]
